FAERS Safety Report 6166501-3 (Version None)
Quarter: 2009Q2

REPORT INFORMATION
  Report Type: 
  Country: None (occurrence: None)
  Receive Date: 20090422
  Receipt Date: 20090422
  Transmission Date: 20091009
  Serious: Yes (Other)
  Sender: FDA-Public Use
  Company Number: None

PATIENT
  Sex: Male
  Weight: 15.8759 kg

DRUGS (1)
  1. AMOXICILLIN [Suspect]
     Indication: EAR INFECTION
     Dosage: 1 1/4 TEASPOON EVERY 8 HOURS PO
     Route: 048
     Dates: start: 20090412, end: 20090422

REACTIONS (8)
  - AGGRESSION [None]
  - ANGER [None]
  - DEPRESSED MOOD [None]
  - PERSONALITY DISORDER [None]
  - PRODUCT QUALITY ISSUE [None]
  - REACTION TO DRUG EXCIPIENTS [None]
  - STRESS [None]
  - URTICARIA [None]
